FAERS Safety Report 18921051 (Version 6)
Quarter: 2021Q2

REPORT INFORMATION
  Report Type: Spontaneous
  Country: US (occurrence: US)
  Receive Date: 20210222
  Receipt Date: 20210405
  Transmission Date: 20210717
  Serious: No
  Sender: FDA-Public Use
  Company Number: US-SA-2021SA050676

PATIENT
  Sex: Male

DRUGS (1)
  1. LANTUS [Suspect]
     Active Substance: INSULIN GLARGINE
     Indication: TYPE 2 DIABETES MELLITUS
     Dosage: 80 UNITS IN THE MORNING, WITH BREAKFAST AND 50 UNITS WITH HIS EVENING MEAL
     Route: 065

REACTIONS (3)
  - Inappropriate schedule of product administration [Unknown]
  - Device operational issue [Unknown]
  - Injection site discolouration [Unknown]
